FAERS Safety Report 11156396 (Version 1)
Quarter: 2015Q2

REPORT INFORMATION
  Report Type: Spontaneous
  Country: PL (occurrence: PL)
  Receive Date: 20150602
  Receipt Date: 20150602
  Transmission Date: 20150821
  Serious: Yes (Life-Threatening)
  Sender: FDA-Public Use
  Company Number: PL-TEVA-566548ISR

PATIENT
  Age: 57 Year
  Sex: Female
  Weight: 93 kg

DRUGS (1)
  1. CISPLATINUM KONCENTRAT 1MG/1ML - 50ML [Suspect]
     Active Substance: CISPLATIN
     Indication: CERVIX CARCINOMA
     Dosage: 135 MILLIGRAM DAILY;
     Route: 041
     Dates: start: 20131001, end: 20131001

REACTIONS (7)
  - Hyperhidrosis [Recovered/Resolved]
  - Generalised erythema [Recovered/Resolved]
  - Abdominal pain upper [Recovered/Resolved]
  - Rectal tenesmus [Recovered/Resolved]
  - Defaecation urgency [None]
  - Dyspnoea [Recovered/Resolved]
  - Blood pressure ambulatory decreased [Recovered/Resolved]

NARRATIVE: CASE EVENT DATE: 20131001
